FAERS Safety Report 6817047-8 (Version None)
Quarter: 2010Q3

REPORT INFORMATION
  Report Type: 
  Country: None (occurrence: None)
  Receive Date: 20100706
  Receipt Date: 20100621
  Transmission Date: 20110219
  Serious: Yes (Hospitalization)
  Sender: FDA-Public Use
  Company Number: FR-TEVA-238623ISR

PATIENT
  Age: 14 Year
  Sex: Male

DRUGS (5)
  1. AMLODIPINE [Suspect]
  2. AMLODIPINE [Interacting]
  3. TACROLIMUS [Interacting]
     Dosage: 0.1 MG/KG/DAY
  4. TACROLIMUS [Interacting]
     Dosage: 0.066 MG/KG/DAY
  5. AZATHIOPRINE [Concomitant]

REACTIONS (2)
  - DRUG INTERACTION [None]
  - RENAL FAILURE ACUTE [None]
